FAERS Safety Report 8306191-4 (Version None)
Quarter: 2012Q2

REPORT INFORMATION
  Report Type: 
  Country: None (occurrence: None)
  Receive Date: 20120423
  Receipt Date: 20120418
  Transmission Date: 20120825
  Serious: Yes (Other)
  Sender: FDA-Public Use
  Company Number: US-PFIZER INC-2012077256

PATIENT
  Sex: Male

DRUGS (1)
  1. DETROL LA [Suspect]
     Dosage: UNK

REACTIONS (4)
  - DEVICE FAILURE [None]
  - ARTIFICIAL URINARY SPHINCTER IMPLANT [None]
  - BLADDER SPASM [None]
  - MEDICAL DEVICE COMPLICATION [None]
